FAERS Safety Report 25120382 (Version 1)
Quarter: 2025Q1

REPORT INFORMATION
  Report Type: Spontaneous
  Country: US (occurrence: None)
  Receive Date: 20250325
  Receipt Date: 20250325
  Transmission Date: 20250409
  Serious: Yes (unspecified)
  Sender: FDA-CTU
  Company Number: None

PATIENT
  Age: 50 Year
  Sex: Female

DRUGS (1)
  1. HUMIRA [Suspect]
     Active Substance: ADALIMUMAB
     Indication: Rheumatoid arthritis
     Dosage: 40MG/0.4ML INJECT 1 PEN SUBCUTANEOUSLY EVERY OTHER WEK
     Route: 058

REACTIONS (4)
  - Chest pain [None]
  - Dyspnoea [None]
  - Nausea [None]
  - Vomiting [None]
